FAERS Safety Report 9227642 (Version 1)
Quarter: 2013Q2

REPORT INFORMATION
  Report Type: Spontaneous
  Country: US (occurrence: US)
  Receive Date: 20130412
  Receipt Date: 20130412
  Transmission Date: 20140414
  Serious: Yes (Hospitalization)
  Sender: FDA-Public Use
  Company Number: US-BRISTOL-MYERS SQUIBB COMPANY-18748822

PATIENT
  Age: 47 Year
  Sex: Female
  Weight: 81.63 kg

DRUGS (3)
  1. ABILIFY [Suspect]
     Indication: ANXIETY
     Dates: start: 20121214, end: 20130128
  2. ABILIFY [Suspect]
     Indication: DEPRESSION
     Dates: start: 20121214, end: 20130128
  3. ZOLOFT [Concomitant]

REACTIONS (16)
  - Frequent bowel movements [Not Recovered/Not Resolved]
  - Dehydration [Unknown]
  - Breast enlargement [Unknown]
  - Galactorrhoea [Unknown]
  - Weight increased [Not Recovered/Not Resolved]
  - Umbilical hernia [Unknown]
  - Abdominal pain [Unknown]
  - Abdominal distension [Unknown]
  - Muscle spasms [Not Recovered/Not Resolved]
  - Myalgia [Unknown]
  - Palpitations [Unknown]
  - Hypotension [Unknown]
  - Blood glucose decreased [Unknown]
  - Tremor [Unknown]
  - Paraesthesia [Not Recovered/Not Resolved]
  - Hypoaesthesia [Not Recovered/Not Resolved]
